FAERS Safety Report 17126800 (Version 1)
Quarter: 2019Q4

REPORT INFORMATION
  Report Type: Spontaneous
  Country: US (occurrence: US)
  Receive Date: 20191209
  Receipt Date: 20191209
  Transmission Date: 20200122
  Serious: No
  Sender: FDA-Public Use
  Company Number: US-UCBSA-2017017302

PATIENT
  Age: 22 Year
  Sex: Male
  Weight: 82 kg

DRUGS (5)
  1. PREDNISONE. [Concomitant]
     Active Substance: PREDNISONE
     Indication: CROHN^S DISEASE
     Dosage: 10 THREE TIMES DAILY
  2. IMURAN [Concomitant]
     Active Substance: AZATHIOPRINE
     Indication: CROHN^S DISEASE
     Dosage: UNK
  3. CIMZIA [Suspect]
     Active Substance: CERTOLIZUMAB PEGOL
     Indication: CROHN^S DISEASE
     Dosage: 400 MG
     Route: 058
     Dates: start: 20170407
  4. CIMZIA [Suspect]
     Active Substance: CERTOLIZUMAB PEGOL
     Dosage: 400 MG, EV 2 WEEKS(QOW)
     Route: 058
     Dates: start: 20170601, end: 20180308
  5. IMURAN [Concomitant]
     Active Substance: AZATHIOPRINE
     Dosage: 150 MG, ONCE DAILY (QD)

REACTIONS (5)
  - Genital infection fungal [Recovering/Resolving]
  - Rash [Recovering/Resolving]
  - Wrong technique in product usage process [Unknown]
  - Skin discolouration [Not Recovered/Not Resolved]
  - Drug ineffective [Unknown]

NARRATIVE: CASE EVENT DATE: 2017
